FAERS Safety Report 21049747 (Version 2)
Quarter: 2022Q3

REPORT INFORMATION
  Report Type: Spontaneous
  Country: DE (occurrence: DE)
  Receive Date: 20220706
  Receipt Date: 20220708
  Transmission Date: 20221026
  Serious: Yes (Other)
  Sender: FDA-Public Use
  Company Number: DE-PFIZER INC-202200833962

PATIENT
  Age: 70 Year
  Sex: Female

DRUGS (9)
  1. FRAGMIN [Suspect]
     Active Substance: DALTEPARIN SODIUM
     Dosage: 10000 IU, DAILY
  2. FRAGMIN [Suspect]
     Active Substance: DALTEPARIN SODIUM
     Dosage: DOSE REDUCED
  3. ASPIRIN [Concomitant]
     Active Substance: ASPIRIN
  4. ATORVASTATIN [Concomitant]
     Active Substance: ATORVASTATIN
  5. PANTOPRAZOLE [Concomitant]
     Active Substance: PANTOPRAZOLE
  6. ALVESCO [Concomitant]
     Active Substance: CICLESONIDE
  7. BISOPROLOL [Concomitant]
     Active Substance: BISOPROLOL
  8. DULOXETINE [Concomitant]
     Active Substance: DULOXETINE
  9. CHOLECALCIFEROL [Concomitant]
     Active Substance: CHOLECALCIFEROL

REACTIONS (5)
  - Cerebrovascular accident [Unknown]
  - Prurigo [Recovered/Resolved with Sequelae]
  - Papule [Recovered/Resolved with Sequelae]
  - Injection site haemorrhage [Recovered/Resolved with Sequelae]
  - Purpura [Recovered/Resolved with Sequelae]
